FAERS Safety Report 4628719-8 (Version None)
Quarter: 2005Q2

REPORT INFORMATION
  Report Type: 
  Country: None (occurrence: None)
  Receive Date: 20050406
  Receipt Date: 20050323
  Transmission Date: 20051028
  Serious: Yes (Other)
  Sender: FDA-Public Use
  Company Number: 26441

PATIENT
  Age: 16 Year
  Sex: Female

DRUGS (1)
  1. ALDARA [Suspect]
     Indication: ACTINIC KERATOSIS
     Dosage: (5 IN 1 WEEK (S), TOPICAL
     Route: 061
     Dates: start: 20040701, end: 20041201

REACTIONS (3)
  - APPLICATION SITE ERYTHEMA [None]
  - APPLICATION SITE IRRITATION [None]
  - CUTANEOUS LUPUS ERYTHEMATOSUS [None]
